FAERS Safety Report 18129186 (Version 1)
Quarter: 2020Q3

REPORT INFORMATION
  Report Type: Spontaneous
  Country: GB (occurrence: GB)
  Receive Date: 20200810
  Receipt Date: 20200810
  Transmission Date: 20201103
  Serious: Yes (Other)
  Sender: FDA-Public Use
  Company Number: GB-ACCORD-194704

PATIENT
  Age: 31 Year
  Sex: Male

DRUGS (1)
  1. AMLODIPINE [Suspect]
     Active Substance: AMLODIPINE BESYLATE
     Indication: HYPERTENSION
     Route: 048
     Dates: start: 2016, end: 20200108

REACTIONS (3)
  - Infertility [Recovered/Resolved]
  - Spermatozoa morphology abnormal [Recovered/Resolved]
  - Sperm concentration abnormal [Unknown]
